FAERS Safety Report 5030253-0 (Version None)
Quarter: 2006Q2

REPORT INFORMATION
  Report Type: 
  Country: None (occurrence: None)
  Receive Date: 20060615
  Receipt Date: 20060530
  Transmission Date: 20061013
  Serious: Yes (Other)
  Sender: FDA-Public Use
  Company Number: US200606000216

PATIENT
  Age: 40 Year
  Sex: Female

DRUGS (2)
  1. GEMZAR [Suspect]
     Indication: CERVIX CARCINOMA STAGE II
     Dosage: 100 MG/M2, WEEKLY (1/W), INTRAVENOUS
     Route: 042
  2. CISPLATIN [Concomitant]

REACTIONS (1)
  - GASTROINTESTINAL TOXICITY [None]
